FAERS Safety Report 5697455-1 (Version None)
Quarter: 2008Q2

REPORT INFORMATION
  Report Type: 
  Country: None (occurrence: None)
  Receive Date: 20080407
  Receipt Date: 20080328
  Transmission Date: 20081010
  Serious: Yes (Other)
  Sender: FDA-Public Use
  Company Number: PHRM2008FR01132

PATIENT
  Age: 60 Year
  Sex: Female

DRUGS (4)
  1. ZOMETA [Suspect]
     Dosage: 4 MG
     Route: 042
     Dates: start: 20070101
  2. CORTANCYL [Concomitant]
     Dosage: 6 MG, QD
     Route: 048
  3. LACTOSE [Concomitant]
  4. MAGNESIUM [Concomitant]

REACTIONS (5)
  - C-REACTIVE PROTEIN INCREASED [None]
  - PURPURA [None]
  - PYREXIA [None]
  - RASH MACULAR [None]
  - VASCULITIS [None]
